FAERS Safety Report 4295446-9 (Version None)
Quarter: 2004Q1

REPORT INFORMATION
  Report Type: 
  Country: None (occurrence: None)
  Receive Date: 20040212
  Receipt Date: 20040128
  Transmission Date: 20041129
  Serious: Yes (Death, Disabling)
  Sender: FDA-Public Use
  Company Number: 2003-06047

PATIENT
  Age: 37 Year
  Sex: Male
  Weight: 55.3 kg

DRUGS (9)
  1. TENOFOVIR DF [Suspect]
     Indication: HIV INFECTION
     Dosage: 300 MG QD PO
     Route: 048
     Dates: start: 20011203, end: 20020627
  2. TENOFOVIR DF [Suspect]
     Indication: HIV INFECTION
     Dosage: 300 MG QD PO
     Route: 048
     Dates: start: 20020311, end: 20020627
  3. AMPRENAVIR [Concomitant]
  4. KALETRA [Concomitant]
  5. DIDANOSINE [Concomitant]
  6. ZIDOVUDINE [Concomitant]
  7. LAMIVUDINE [Concomitant]
  8. ALDACTONE [Concomitant]
  9. SEGURIL [Concomitant]

REACTIONS (4)
  - HEPATIC ENCEPHALOPATHY [None]
  - HEPATITIS C [None]
  - MULTI-ORGAN FAILURE [None]
  - OESOPHAGEAL VARICES HAEMORRHAGE [None]
